FAERS Safety Report 24034432 (Version 2)
Quarter: 2024Q3

REPORT INFORMATION
  Report Type: Report from Study
  Country: US (occurrence: US)
  Receive Date: 20240701
  Receipt Date: 20240702
  Transmission Date: 20241016
  Serious: Yes (Death)
  Sender: BAYER
  Company Number: US-BAYER-2024A094488

PATIENT
  Age: 65 Year
  Sex: Female
  Weight: 45.351 kg

DRUGS (17)
  1. ADEMPAS [Suspect]
     Active Substance: RIOCIGUAT
     Indication: Pulmonary arterial hypertension
     Dosage: UNK
     Dates: start: 20240321
  2. ADEMPAS [Suspect]
     Active Substance: RIOCIGUAT
     Indication: Pulmonary arterial hypertension
     Dosage: 2.5 MG, TID
     Route: 048
  3. VITAMIN D3 [Concomitant]
     Active Substance: CHOLECALCIFEROL
  4. UPTRAVI [Concomitant]
     Active Substance: SELEXIPAG
  5. TYLENOL [Concomitant]
     Active Substance: ACETAMINOPHEN
  6. POTASSIUM CHLORIDE [Concomitant]
     Active Substance: POTASSIUM CHLORIDE
  7. IMODIUM A-D [Concomitant]
     Active Substance: LOPERAMIDE HYDROCHLORIDE
  8. ROSUVASTATIN CALCIUM [Concomitant]
     Active Substance: ROSUVASTATIN CALCIUM
  9. PREGABALIN [Concomitant]
     Active Substance: PREGABALIN
  10. PROTONIX [Concomitant]
     Active Substance: PANTOPRAZOLE SODIUM
  11. SODIUM CHLORIDE [Concomitant]
     Active Substance: SODIUM CHLORIDE
  12. OPSUMIT [Concomitant]
     Active Substance: MACITENTAN
  13. TOPAMAX [Concomitant]
     Active Substance: TOPIRAMATE
  14. OXYGEN [Concomitant]
     Active Substance: OXYGEN
  15. MIDODRINE HYDROCHLORIDE [Concomitant]
     Active Substance: MIDODRINE HYDROCHLORIDE
  16. CHLORASEPTIC SORE THROAT [Concomitant]
     Active Substance: PHENOL
  17. MUCINEX [Concomitant]
     Active Substance: GUAIFENESIN

REACTIONS (1)
  - Death [Fatal]

NARRATIVE: CASE EVENT DATE: 20240622
